FAERS Safety Report 6011524-8 (Version None)
Quarter: 2008Q4

REPORT INFORMATION
  Report Type: 
  Country: None (occurrence: None)
  Receive Date: 20081218
  Receipt Date: 20080903
  Transmission Date: 20090506
  Serious: No
  Sender: FDA-Public Use
  Company Number: US-ASTRAZENECA-2008UW18121

PATIENT
  Age: 50 Year
  Sex: Male
  Weight: 88.5 kg

DRUGS (3)
  1. CRESTOR [Suspect]
     Indication: BLOOD CHOLESTEROL INCREASED
     Dosage: 10 MG
     Route: 048
     Dates: start: 20071101, end: 20080501
  2. CRESTOR [Suspect]
     Dosage: 20 MG
     Route: 048
     Dates: start: 20080501
  3. AMLODIPINE [Concomitant]

REACTIONS (3)
  - ASTHENIA [None]
  - DISORIENTATION [None]
  - MYALGIA [None]
